FAERS Safety Report 9494590 (Version 1)
Quarter: 2013Q3

REPORT INFORMATION
  Report Type: Spontaneous
  Country: US (occurrence: None)
  Receive Date: 20130830
  Receipt Date: 20130830
  Transmission Date: 20140515
  Serious: Yes (Disabling, Other)
  Sender: FDA-Public Use
  Company Number: None

PATIENT
  Age: 36 Year
  Sex: Female
  Weight: 68.04 kg

DRUGS (3)
  1. PYLERA [Suspect]
     Indication: HELICOBACTER INFECTION
     Dosage: 3 CAPSULES  4X/DAY AFTER MEALS + BEDTIME  MOUTH
     Route: 048
     Dates: start: 20130513, end: 20130528
  2. CENTRUM MULTI-VITAMIN PLUS MINERAL [Concomitant]
  3. DR. OHHIRA^S PRO+PREBIOTIC [Concomitant]

REACTIONS (1)
  - Myoclonus [None]
